FAERS Safety Report 25986908 (Version 1)
Quarter: 2025Q4

REPORT INFORMATION
  Report Type: Spontaneous
  Country: EU (occurrence: EU)
  Receive Date: 20251102
  Receipt Date: 20251102
  Transmission Date: 20260117
  Serious: Yes (Death)
  Sender: AMGEN
  Company Number: EU-AMGEN-SWESP2025215706

PATIENT

DRUGS (2)
  1. XGEVA [Suspect]
     Active Substance: DENOSUMAB
     Indication: Metastases to bone
     Dosage: UNK
     Route: 065
  2. XGEVA [Suspect]
     Active Substance: DENOSUMAB
     Indication: Spinal cord compression

REACTIONS (3)
  - Small intestine neuroendocrine tumour [Fatal]
  - Cerebral disorder [Fatal]
  - Cardiac disorder [Fatal]
